FAERS Safety Report 11607785 (Version 1)
Quarter: 2015Q4

REPORT INFORMATION
  Report Type: Report from Study
  Country: AU (occurrence: AU)
  Receive Date: 20151007
  Receipt Date: 20151007
  Transmission Date: 20160304
  Serious: Yes (Other)
  Sender: FDA-Public Use
  Company Number: AU-REGENERON PHARMACEUTICALS, INC.-2015-12737

PATIENT

DRUGS (2)
  1. EYLEA [Suspect]
     Active Substance: AFLIBERCEPT
     Indication: NEOVASCULAR AGE-RELATED MACULAR DEGENERATION
     Dosage: 2 MG, LEFT EYE - 12 WEEKLY LEFT
     Route: 031
     Dates: start: 20140901
  2. EYLEA [Suspect]
     Active Substance: AFLIBERCEPT
     Dosage: 2 MG, LOADING DOSE RIGHT EYE
     Route: 031
     Dates: start: 20150928

REACTIONS (2)
  - Neovascular age-related macular degeneration [Unknown]
  - Cataract operation [Unknown]

NARRATIVE: CASE EVENT DATE: 2015
